FAERS Safety Report 9729427 (Version 1)
Quarter: 2013Q4

REPORT INFORMATION
  Report Type: Spontaneous
  Country: US (occurrence: US)
  Receive Date: 20131204
  Receipt Date: 20131204
  Transmission Date: 20140711
  Serious: No
  Sender: FDA-Public Use
  Company Number: US-GILEAD-2009-0021261

PATIENT
  Sex: Female
  Weight: 81.19 kg

DRUGS (7)
  1. LETAIRIS [Suspect]
     Indication: PULMONARY ARTERIAL HYPERTENSION
     Route: 048
     Dates: start: 20090325
  2. WARFARIN [Concomitant]
  3. OXYGEN [Concomitant]
  4. BUMETANIDE [Concomitant]
  5. COMBIVENT [Concomitant]
  6. DUONEB [Concomitant]
  7. POTASSIUM [Concomitant]

REACTIONS (1)
  - Sputum retention [Unknown]
